FAERS Safety Report 5029312-8 (Version None)
Quarter: 2006Q2

REPORT INFORMATION
  Report Type: 
  Country: None (occurrence: None)
  Receive Date: 20060614
  Receipt Date: 20060526
  Transmission Date: 20061013
  Serious: Yes (Hospitalization, Other)
  Sender: FDA-Public Use
  Company Number: US200605003094

PATIENT
  Age: 49 Year
  Sex: Male
  Weight: 71.7 kg

DRUGS (5)
  1. CIALIS [Suspect]
     Indication: ERECTILE DYSFUNCTION
     Dosage: 10  MG, ORAL;  20 MG
     Route: 048
     Dates: start: 20060401, end: 20060401
  2. CIALIS [Suspect]
     Indication: ERECTILE DYSFUNCTION
     Dosage: 10  MG, ORAL;  20 MG
     Route: 048
     Dates: start: 20060301, end: 20060512
  3. LITHIUM (LITHIUM) [Concomitant]
  4. PERCOCET [Concomitant]
  5. CARBAMAZEPINE [Concomitant]

REACTIONS (5)
  - ESCHERICHIA URINARY TRACT INFECTION [None]
  - HEADACHE [None]
  - INFECTED CYST [None]
  - PROTEIN URINE [None]
  - THERAPEUTIC RESPONSE DECREASED [None]
